FAERS Safety Report 13081807 (Version 1)
Quarter: 2017Q1

REPORT INFORMATION
  Report Type: Spontaneous
  Country: HK (occurrence: HK)
  Receive Date: 20170103
  Receipt Date: 20170103
  Transmission Date: 20170428
  Serious: Yes (Hospitalization)
  Sender: FDA-Public Use
  Company Number: HK-BAYER-2016-220137

PATIENT
  Age: 85 Year
  Sex: Male

DRUGS (4)
  1. XOFIGO [Suspect]
     Active Substance: RADIUM RA-223 DICHLORIDE
     Indication: PROSTATE CANCER METASTATIC
     Dosage: DOSAGE REIMEN: 2.3ML SLOW INTRAVENOUS EVERY 4 WEEKS
     Route: 042
     Dates: start: 20160823, end: 20161018
  2. PANTOLOC [Concomitant]
     Active Substance: PANTOPRAZOLE SODIUM
     Indication: PROSTATE CANCER
     Dosage: 20 MG, BID
     Dates: start: 201610
  3. PREDNISOLONE. [Concomitant]
     Active Substance: PREDNISOLONE
     Indication: PROSTATE CANCER
     Dosage: 5 MG, BID
     Dates: start: 201610
  4. DENOSUMAB [Concomitant]
     Active Substance: DENOSUMAB
     Indication: PROSTATE CANCER
     Dosage: 120 MG, Q4WK
     Route: 058
     Dates: start: 2014

REACTIONS (1)
  - Prostate cancer metastatic [None]

NARRATIVE: CASE EVENT DATE: 20161103
